FAERS Safety Report 4747843-2 (Version None)
Quarter: 2005Q3

REPORT INFORMATION
  Report Type: 
  Country: None (occurrence: None)
  Receive Date: 20050818
  Receipt Date: 20041006
  Transmission Date: 20060218
  Serious: Yes (Other)
  Sender: FDA-Public Use
  Company Number: US-BRISTOL-MYERS SQUIBB COMPANY-12724118

PATIENT
  Sex: Female

DRUGS (3)
  1. MEGACE [Suspect]
     Indication: ENDOMETRIAL CANCER
     Route: 048
  2. PROVERA [Concomitant]
  3. HYDROCHLOROTHIAZIDE [Concomitant]

REACTIONS (1)
  - DIABETES MELLITUS [None]
